FAERS Safety Report 5830023-7 (Version None)
Quarter: 2008Q3

REPORT INFORMATION
  Report Type: 
  Country: None (occurrence: None)
  Receive Date: 20080731
  Receipt Date: 20080731
  Transmission Date: 20090109
  Serious: Yes (Other)
  Sender: FDA-Public Use
  Company Number: None

PATIENT
  Age: 5 Year
  Sex: Male
  Weight: 19.5047 kg

DRUGS (1)
  1. DIAZEPAM [Suspect]
     Indication: ANXIETY
     Dosage: 1 TABLET ONCE ONLY PO
     Route: 048
     Dates: start: 20080730, end: 20080730

REACTIONS (3)
  - AGGRESSION [None]
  - FEELING ABNORMAL [None]
  - SCREAMING [None]
